FAERS Safety Report 5628482-8 (Version None)
Quarter: 2008Q1

REPORT INFORMATION
  Report Type: 
  Country: None (occurrence: None)
  Receive Date: 20080215
  Receipt Date: 20080207
  Transmission Date: 20080703
  Serious: Yes (Other)
  Sender: FDA-Public Use
  Company Number: US-PFIZER INC-2008002916

PATIENT
  Sex: Female
  Weight: 79.4 kg

DRUGS (5)
  1. CELEBREX [Suspect]
     Indication: MIXED CONNECTIVE TISSUE DISEASE
     Route: 048
  2. ESTRACE [Concomitant]
  3. WELLBUTRIN - SLOW RELEASE [Concomitant]
  4. DIGOXIN [Concomitant]
  5. COLCHICINE [Concomitant]

REACTIONS (5)
  - GASTRITIS [None]
  - GASTROINTESTINAL HAEMORRHAGE [None]
  - SPINAL FUSION SURGERY [None]
  - STRESS [None]
  - VOCAL CORD PARESIS [None]
